FAERS Safety Report 9688384 (Version 1)
Quarter: 2013Q4

REPORT INFORMATION
  Report Type: Spontaneous
  Country: US (occurrence: None)
  Receive Date: 20131113
  Receipt Date: 20131113
  Transmission Date: 20140711
  Serious: Yes (Disabling)
  Sender: FDA-Public Use
  Company Number: None

PATIENT
  Sex: Male
  Weight: 83.92 kg

DRUGS (6)
  1. PROPECIA [Suspect]
     Indication: PROPHYLAXIS
     Route: 048
     Dates: start: 19980601, end: 20090601
  2. PROPECIA [Suspect]
     Indication: ALOPECIA
     Route: 048
     Dates: start: 19980601, end: 20090601
  3. ADDERALL [Concomitant]
  4. CELEXA [Concomitant]
  5. ATIVAN [Concomitant]
  6. MULTI VITAMIN [Concomitant]

REACTIONS (8)
  - Erectile dysfunction [None]
  - Loss of libido [None]
  - Psychiatric symptom [None]
  - Dizziness [None]
  - Testicular atrophy [None]
  - Penile size reduced [None]
  - Genital pain [None]
  - Decreased interest [None]
